FAERS Safety Report 15505631 (Version 3)
Quarter: 2019Q1

REPORT INFORMATION
  Report Type: Report from Study
  Country: DE (occurrence: DE)
  Receive Date: 20181016
  Receipt Date: 20190318
  Transmission Date: 20190417
  Serious: Yes (Hospitalization, Other)
  Sender: FDA-Public Use
  Company Number: DE-ACCORD-073133

PATIENT
  Age: 78 Year
  Sex: Male
  Weight: 95 kg

DRUGS (29)
  1. CEFPODOXIME/CEFPODOXIME PROXETIL [Suspect]
     Active Substance: CEFPODOXIME PROXETIL
     Indication: COLORECTAL CANCER
     Route: 048
     Dates: start: 20151127, end: 20160512
  2. IRINOTECAN [Concomitant]
     Active Substance: IRINOTECAN
     Indication: COLORECTAL CANCER
     Dosage: DAILY DOSE: 200 MG MILLGRAM(S) EVERY 3 WEEKS
     Route: 042
     Dates: start: 20161128, end: 20170421
  3. BISOPROLOL [Concomitant]
     Active Substance: BISOPROLOL
     Indication: HYPERTENSION
     Dosage: DAILY DOSE: 10 MG MILLGRAM(S) EVERY DAYS
     Route: 048
     Dates: start: 2001
  4. LINEZOLID. [Concomitant]
     Active Substance: LINEZOLID
     Dosage: DAILY DOSE: 1200 MG MILLGRAM(S) EVERY DAYS,600 MG
     Route: 048
     Dates: start: 20170331, end: 20170409
  5. NITRENDIPINE [Concomitant]
     Active Substance: NITRENDIPINE
     Indication: HYPERTENSION
     Dosage: DAILY DOSE: 20 MG MILLGRAM(S) EVERY DAYS
     Route: 048
     Dates: start: 2007
  6. BEVACIZUMAB. [Suspect]
     Active Substance: BEVACIZUMAB
     Indication: COLORECTAL CANCER METASTATIC
     Dosage: DAILY DOSE:712.5MG?RECEIVED 712.5MG 3WK 29-JAN-16 + 18-MAR-16, 600MG 3WK 03-FEB-16,
     Route: 042
     Dates: start: 20151127
  7. NOVALGIN [Concomitant]
     Dosage: DAILY DOSE: 1500 MG EVERY DAYS?ALSO RECEIVED ON 06-JUN-2016,500 MG
     Route: 048
     Dates: start: 20160318
  8. PROTEINS NOS [Concomitant]
     Active Substance: PROTEIN
     Indication: WEIGHT DECREASED
     Dosage: AS REQUIRED
     Route: 048
     Dates: end: 20160923
  9. CAPECITABINE. [Suspect]
     Active Substance: CAPECITABINE
     Indication: COLORECTAL CANCER
     Dosage: DAILY DOSE4300MG3WKRECEIVED4000MG 3WK02-9-2016 3000MG 3WK14-10-16-17-11-16+04-11-2016-27-7-2017
     Route: 048
     Dates: start: 20151127, end: 20160512
  10. CIPROFLOXACIN. [Concomitant]
     Active Substance: CIPROFLOXACIN
     Dosage: DAILY DOSE: 500 MG MILLGRAM(S) EVERY DAYS.250 MG
     Route: 048
     Dates: start: 20170512, end: 20170516
  11. CEFPODOXIME/CEFPODOXIME PROXETIL [Concomitant]
     Dosage: DAILY DOSE: 400 MG EVERY DAYS
     Route: 048
     Dates: start: 20170602, end: 20170612
  12. DEXAMETHASONE. [Concomitant]
     Active Substance: DEXAMETHASONE
     Indication: INFECTION
     Dosage: DAY 1 AND 2 OF CHEMOTHERAPY
     Route: 048
     Dates: start: 20161128, end: 20170805
  13. PHENPROCOUMON [Concomitant]
     Active Substance: PHENPROCOUMON
     Dosage: ACCORDING TO QUICK VALUE
     Route: 048
  14. MACROGOL/MACROGOL STEARATE [Concomitant]
     Indication: CONSTIPATION
     Route: 048
     Dates: start: 20160426
  15. PANTOPRAZOLE [Concomitant]
     Active Substance: PANTOPRAZOLE
     Dosage: DAILY DOSE: 40 MG MILLGRAM(S) EVERY DAYS
     Route: 048
     Dates: start: 20151123
  16. PYRIDOXINE [Concomitant]
     Active Substance: PYRIDOXINE
     Route: 048
     Dates: start: 20161014
  17. IBUPROFEN. [Concomitant]
     Active Substance: IBUPROFEN
     Route: 048
     Dates: start: 20160226
  18. PHENPROCOUMON [Concomitant]
     Active Substance: PHENPROCOUMON
     Indication: ATRIAL FIBRILLATION
     Dosage: DEPENDING ON QUICK VALUE?ALSO RECEIVED ORALLY
     Route: 058
     Dates: start: 20151218, end: 20160922
  19. GRANISETRON [Concomitant]
     Active Substance: GRANISETRON
     Dosage: DAY 1 OF CHEMOTHERAPY
     Route: 042
     Dates: start: 20161128, end: 20170804
  20. HYDROCHLOROTHIAZIDE. [Concomitant]
     Active Substance: HYDROCHLOROTHIAZIDE
     Indication: HYPERTENSION
     Dosage: DAILY DOSE: 25 MG MILLGRAM(S) EVERY DAYS
     Route: 048
     Dates: start: 20150909
  21. MARCUMAR [Concomitant]
     Active Substance: PHENPROCOUMON
     Indication: ATRIAL FIBRILLATION
     Dosage: ALSO RECEIVED ORALLY ACCORDING TO QUICK VALUE
     Route: 058
     Dates: start: 20151218, end: 20160922
  22. MORPHINE [Concomitant]
     Active Substance: MORPHINE
     Route: 048
     Dates: start: 20161223
  23. METAMIZOLE SODIUM [Concomitant]
     Active Substance: METAMIZOLE SODIUM
     Route: 048
     Dates: start: 20151123
  24. THIAMINE. [Concomitant]
     Active Substance: THIAMINE
     Route: 048
     Dates: start: 20170123
  25. VOLTAREN [Concomitant]
     Active Substance: DICLOFENAC SODIUM
     Indication: PAIN
     Route: 061
     Dates: start: 20160318
  26. ALIZAPRIDE [Concomitant]
     Active Substance: ALIZAPRIDE
     Indication: NAUSEA
     Dosage: DAILY DOSE: 150 MG MILLGRAM(S) EVERY DAYS,50 MG
     Route: 048
     Dates: start: 20151128
  27. POVIDONE-IODINE. [Concomitant]
     Active Substance: POVIDONE-IODINE
     Indication: NAIL BED INFLAMMATION
     Route: 065
     Dates: start: 20161223, end: 20170113
  28. ATROPINE. [Concomitant]
     Active Substance: ATROPINE
     Indication: CHOLINERGIC SYNDROME
     Dosage: CYCLICAL, PRIOR TO CHEMOTHERAPY WITH IRINOTECAN,
     Route: 058
     Dates: start: 20161128, end: 20170804
  29. TORASEMIDE [Concomitant]
     Active Substance: TORSEMIDE
     Indication: CARDIAC FAILURE
     Dosage: DAILY DOSE: 5 MG MILLGRAM(S) EVERY DAYS
     Route: 048
     Dates: start: 20150909

REACTIONS (30)
  - Nail bed inflammation [Unknown]
  - Dyspnoea [Recovered/Resolved]
  - Flank pain [Recovered/Resolved]
  - Cystitis [Not Recovered/Not Resolved]
  - Incisional hernia [Unknown]
  - Alopecia [Not Recovered/Not Resolved]
  - Palmar-plantar erythrodysaesthesia syndrome [Recovered/Resolved]
  - Nausea [Recovered/Resolved]
  - Gamma-glutamyltransferase increased [Not Recovered/Not Resolved]
  - Jaundice [Unknown]
  - Sinus tachycardia [Recovered/Resolved]
  - Proteinuria [Not Recovered/Not Resolved]
  - Visual impairment [Not Recovered/Not Resolved]
  - Diarrhoea [Recovered/Resolved]
  - Insomnia [Recovered/Resolved]
  - Polyneuropathy [Not Recovered/Not Resolved]
  - Prostatitis [Recovered/Resolved]
  - Blood bilirubin increased [Not Recovered/Not Resolved]
  - Dysgeusia [Recovered/Resolved]
  - Prothrombin time prolonged [Recovered/Resolved]
  - Constipation [Recovered/Resolved]
  - Fatigue [Not Recovered/Not Resolved]
  - Skin ulcer [Not Recovered/Not Resolved]
  - Decreased appetite [Recovered/Resolved]
  - Hip arthroplasty [Not Recovered/Not Resolved]
  - Blood uric acid increased [Recovered/Resolved]
  - Oedema peripheral [Not Recovered/Not Resolved]
  - Dry mouth [Recovered/Resolved]
  - Mucosal inflammation [Recovered/Resolved]
  - Weight decreased [Not Recovered/Not Resolved]

NARRATIVE: CASE EVENT DATE: 20151127
